FAERS Safety Report 15639069 (Version 1)
Quarter: 2018Q4

REPORT INFORMATION
  Report Type: Spontaneous
  Country: US (occurrence: US)
  Receive Date: 20181120
  Receipt Date: 20181120
  Transmission Date: 20190205
  Serious: No
  Sender: FDA-Public Use
  Company Number: US-JNJFOC-20180311257

PATIENT
  Sex: Male

DRUGS (9)
  1. IMBRUVICA [Suspect]
     Active Substance: IBRUTINIB
     Indication: MANTLE CELL LYMPHOMA
     Route: 048
     Dates: start: 20161202, end: 20180305
  2. CALCITRATE [Concomitant]
     Active Substance: CALCIUM CITRATE
  3. RAPAFLO [Concomitant]
     Active Substance: SILODOSIN
  4. TIMOLOL. [Concomitant]
     Active Substance: TIMOLOL
  5. METOPROLOL. [Concomitant]
     Active Substance: METOPROLOL
  6. CENTRUM SILVER [Concomitant]
     Active Substance: MINERALS\VITAMINS
  7. ASPIRIN. [Concomitant]
     Active Substance: ASPIRIN
  8. ELIQUIS [Concomitant]
     Active Substance: APIXABAN
  9. FINASTERIDE. [Concomitant]
     Active Substance: FINASTERIDE

REACTIONS (1)
  - Disease progression [Unknown]
